FAERS Safety Report 5020095-4 (Version None)
Quarter: 2006Q2

REPORT INFORMATION
  Report Type: 
  Country: None (occurrence: None)
  Receive Date: 20060607
  Receipt Date: 20060522
  Transmission Date: 20061013
  Serious: Yes (Hospitalization)
  Sender: FDA-Public Use
  Company Number: NL-ROCHE-449099

PATIENT
  Age: 61 Year
  Sex: Male

DRUGS (3)
  1. CAPECITABINE [Suspect]
     Route: 048
     Dates: start: 20060116, end: 20060514
  2. OXALIPLATIN [Suspect]
     Route: 042
     Dates: start: 20060116, end: 20060501
  3. AVASTIN [Suspect]
     Route: 042
     Dates: start: 20060116, end: 20060501

REACTIONS (2)
  - MALAISE [None]
  - RENAL FAILURE [None]
